FAERS Safety Report 20955713 (Version 2)
Quarter: 2023Q1

REPORT INFORMATION
  Report Type: Spontaneous
  Country: US (occurrence: US)
  Receive Date: 20220614
  Receipt Date: 20230113
  Transmission Date: 20230417
  Serious: Yes (Other)
  Sender: FDA-Public Use
  Company Number: US-MACLEODS PHARMACEUTICALS US LTD-MAC2022036036

PATIENT

DRUGS (2)
  1. TENOFOVIR ALAFENAMIDE [Suspect]
     Active Substance: TENOFOVIR ALAFENAMIDE
     Indication: Hepatitis B
     Dosage: 25 MILLIGRAM, QD (VEMLIDY)
     Route: 048
     Dates: start: 20190811, end: 20190812
  2. CLEVIDIPINE [Concomitant]
     Active Substance: CLEVIDIPINE
     Indication: Blood pressure systolic
     Dosage: UNK
     Route: 065

REACTIONS (1)
  - Lactic acidosis [Recovered/Resolved]

NARRATIVE: CASE EVENT DATE: 20190813
